FAERS Safety Report 4561385-9 (Version None)
Quarter: 2005Q1

REPORT INFORMATION
  Report Type: 
  Country: None (occurrence: None)
  Receive Date: 20050126
  Receipt Date: 20050119
  Transmission Date: 20050727
  Serious: Yes (Other)
  Sender: FDA-Public Use
  Company Number: FR-ROCHE-392988

PATIENT
  Age: 71 Year
  Sex: Female

DRUGS (1)
  1. XENICAL [Suspect]
     Indication: DRUG USE FOR UNKNOWN INDICATION
     Route: 065

REACTIONS (3)
  - DIARRHOEA [None]
  - HIATUS HERNIA [None]
  - VOMITING [None]
